FAERS Safety Report 9415458 (Version 3)
Quarter: 2013Q3

REPORT INFORMATION
  Report Type: Spontaneous
  Country: US (occurrence: US)
  Receive Date: 20130723
  Receipt Date: 20130819
  Transmission Date: 20140515
  Serious: No
  Sender: FDA-Public Use
  Company Number: US-PFIZER INC-2013210962

PATIENT
  Age: 78 Year
  Sex: Male

DRUGS (10)
  1. SUTENT [Suspect]
     Indication: RENAL CANCER
     Dosage: 12.5 MG, UNK
     Dates: start: 20130228
  2. SUTENT [Suspect]
     Dosage: 25 MG, UNK
     Dates: start: 20130228
  3. AMLODIPINE BESILATE [Concomitant]
     Dosage: UNK
  4. ASPIRIN [Concomitant]
     Dosage: UNK
  5. BENAZEPRIL HYDROCHLORIDE [Concomitant]
     Dosage: UNK
  6. GLIMEPIRIDE [Concomitant]
     Dosage: UNK
  7. METFORMIN HYDROCHLORIDE [Concomitant]
     Dosage: UNK
  8. METOPROLOL TARTRATE [Concomitant]
     Dosage: UNK
  9. SIMVASTATIN [Concomitant]
     Dosage: UNK
  10. WARFARIN SODIUM [Concomitant]
     Dosage: UNK

REACTIONS (2)
  - Blood count abnormal [Unknown]
  - Fracture [Unknown]
